FAERS Safety Report 25098355 (Version 1)
Quarter: 2025Q1

REPORT INFORMATION
  Report Type: Spontaneous
  Country: PL (occurrence: PL)
  Receive Date: 20250320
  Receipt Date: 20250320
  Transmission Date: 20250409
  Serious: Yes (Hospitalization)
  Sender: JOHNSON AND JOHNSON
  Company Number: None

PATIENT
  Age: 6 Year
  Sex: Male
  Weight: 16.8 kg

DRUGS (6)
  1. RISPERIDONE [Suspect]
     Active Substance: RISPERIDONE
     Indication: Toxicity to various agents
     Route: 048
     Dates: start: 20241217
  2. RISPERIDONE [Suspect]
     Active Substance: RISPERIDONE
     Indication: Adverse drug reaction
  3. RISPERIDONE [Suspect]
     Active Substance: RISPERIDONE
  4. RISPERIDONE [Suspect]
     Active Substance: RISPERIDONE
  5. RISPERIDONE [Suspect]
     Active Substance: RISPERIDONE
  6. RISPERIDONE [Suspect]
     Active Substance: RISPERIDONE

REACTIONS (8)
  - Overdose [Recovered/Resolved]
  - Somnolence [Recovered/Resolved]
  - Altered state of consciousness [Recovered/Resolved]
  - Slow response to stimuli [Recovered/Resolved]
  - Tachycardia [Recovered/Resolved]
  - Heart sounds normal [Recovered/Resolved]
  - Muscle strength normal [Recovered/Resolved]
  - Toxicity to various agents [Recovered/Resolved]

NARRATIVE: CASE EVENT DATE: 20241217
